FAERS Safety Report 5259795-X (Version None)
Quarter: 2007Q1

REPORT INFORMATION
  Report Type: 
  Country: None (occurrence: None)
  Receive Date: 20070309
  Receipt Date: 20070305
  Transmission Date: 20070707
  Serious: Yes (Other)
  Sender: FDA-Public Use
  Company Number: US-BRISTOL-MYERS SQUIBB COMPANY-13700588

PATIENT
  Age: 49 Year
  Sex: Male

DRUGS (9)
  1. METHOTREXATE [Suspect]
     Indication: B PRECURSOR TYPE ACUTE LEUKAEMIA
  2. ETOPOSIDE [Suspect]
     Indication: B PRECURSOR TYPE ACUTE LEUKAEMIA
  3. CYCLOPHOSPHAMIDE [Suspect]
     Indication: B PRECURSOR TYPE ACUTE LEUKAEMIA
  4. DOXORUBICIN HCL [Suspect]
     Indication: B PRECURSOR TYPE ACUTE LEUKAEMIA
  5. VINCRISTINE SULFATE [Suspect]
     Indication: ACUTE LYMPHOCYTIC LEUKAEMIA
  6. CYTARABINE [Suspect]
     Indication: B PRECURSOR TYPE ACUTE LEUKAEMIA
  7. DEXAMETHASONE [Suspect]
     Indication: B PRECURSOR TYPE ACUTE LEUKAEMIA
  8. TRIMETHOPRIM + SULFAMETHOXAZOLE [Suspect]
     Indication: PROPHYLAXIS
  9. RADIATION THERAPY [Concomitant]
     Indication: B PRECURSOR TYPE ACUTE LEUKAEMIA

REACTIONS (4)
  - LEUKOPENIA [None]
  - MUCOSAL INFLAMMATION [None]
  - RASH MACULO-PAPULAR [None]
  - UV LIGHT THERAPY [None]
